FAERS Safety Report 14390017 (Version 1)
Quarter: 2018Q1

REPORT INFORMATION
  Report Type: Spontaneous
  Country: NL (occurrence: PT)
  Receive Date: 20180115
  Receipt Date: 20180115
  Transmission Date: 20180509
  Serious: Yes (Other)
  Sender: FDA-Public Use
  Company Number: NL-009507513-1801NLD002941

PATIENT
  Age: 76 Year
  Sex: Male

DRUGS (4)
  1. ENALAPRIL MALEATE. [Concomitant]
     Active Substance: ENALAPRIL MALEATE
     Dosage: UNK, 2X PER DAY
  2. JANUMET [Suspect]
     Active Substance: METFORMIN HYDROCHLORIDE\SITAGLIPTIN PHOSPHATE
     Dosage: 50/850 MG, BID (2X PER DAY)
     Route: 048
     Dates: start: 2014
  3. SOTALOL. [Concomitant]
     Active Substance: SOTALOL
     Dosage: UNK, 2X PER DAY
  4. RESVERATROL [Concomitant]
     Active Substance: DIETARY SUPPLEMENT\RESVERATROL
     Dosage: UNK, 2X PER DAY

REACTIONS (8)
  - Deafness unilateral [Unknown]
  - Petechiae [Unknown]
  - Drug hypersensitivity [Unknown]
  - Blood cholesterol increased [Unknown]
  - Pruritus [Unknown]
  - Insomnia [Recovered/Resolved]
  - Somnolence [Unknown]
  - Rash erythematous [Unknown]

NARRATIVE: CASE EVENT DATE: 201708
